FAERS Safety Report 8382642-4 (Version None)
Quarter: 2012Q2

REPORT INFORMATION
  Report Type: 
  Country: None (occurrence: None)
  Receive Date: 20120524
  Receipt Date: 20120514
  Transmission Date: 20120825
  Serious: Yes (Death, Other)
  Sender: FDA-Public Use
  Company Number: US-ELI_LILLY_AND_COMPANY-US201107000121

PATIENT
  Age: 75 Year
  Sex: Female

DRUGS (18)
  1. FORTEO [Suspect]
     Indication: OSTEOPOROSIS
     Dosage: 20 UG, QD
     Route: 065
     Dates: start: 20101101
  2. SINGULAIR [Concomitant]
  3. PRAVASTATIN [Concomitant]
  4. ALBUTEROL SULFATE [Concomitant]
  5. VITAMIIN C [Concomitant]
  6. HYDROCODONE [Concomitant]
  7. RISPERIDONE [Concomitant]
  8. MULTI-VITAMIN [Concomitant]
  9. VITAMIN B-12 [Concomitant]
  10. KETOCONAZOLE [Concomitant]
  11. OMEPRAZOLE [Concomitant]
  12. STOOL SOFTENER [Concomitant]
  13. BONIVA [Concomitant]
  14. SERTRALINE HYDROCHLORIDE [Concomitant]
  15. IPRATROPIUM BROMIDE [Concomitant]
  16. VITAMIN E [Concomitant]
  17. CALCIUM W/VITAMIN D NOS [Concomitant]
  18. UNITHROID [Concomitant]

REACTIONS (2)
  - HOSPICE CARE [None]
  - DEATH [None]
